FAERS Safety Report 8289573-9 (Version None)
Quarter: 2012Q2

REPORT INFORMATION
  Report Type: 
  Country: None (occurrence: None)
  Receive Date: 20120417
  Receipt Date: 20120411
  Transmission Date: 20120825
  Serious: Yes (Hospitalization)
  Sender: FDA-Public Use
  Company Number: PHHY2012FR031327

PATIENT
  Age: 50 Year
  Sex: Female

DRUGS (1)
  1. GILENYA [Suspect]
     Dosage: UNK UKN, OT
     Route: 048
     Dates: start: 20120405

REACTIONS (2)
  - BRADYCARDIA [None]
  - ATRIOVENTRICULAR BLOCK [None]
